FAERS Safety Report 7637105 (Version 5)
Quarter: 2013Q1

REPORT INFORMATION
  Report Type: Spontaneous
  Country: JP (occurrence: JP)
  Receive Date: 20101022
  Receipt Date: 20130227
  Transmission Date: 20140127
  Serious: Yes (Hospitalization, Other)
  Sender: FDA-Public Use
  Company Number: JP-JNJFOC-20101004337

PATIENT
  Age: 75 Year
  Sex: Male
  Weight: 64 kg

DRUGS (14)
  1. DUROTEP MT [Suspect]
     Indication: CANCER PAIN
     Route: 062
  2. DUROTEP MT [Suspect]
     Indication: CANCER PAIN
     Route: 062
  3. HALCION [Suspect]
     Indication: PRODUCT USED FOR UNKNOWN INDICATION
     Route: 048
  4. ROHYPNOL [Suspect]
     Indication: PRODUCT USED FOR UNKNOWN INDICATION
     Route: 048
  5. AMLODIN OD [Concomitant]
     Route: 048
  6. TAKEPRON [Concomitant]
     Route: 048
  7. PURSENNID [Concomitant]
     Route: 048
  8. EPL [Concomitant]
     Route: 048
  9. URSO [Concomitant]
     Route: 048
  10. MYONAL [Concomitant]
     Route: 048
  11. METHYCOBAL [Concomitant]
     Route: 048
  12. SIGMART [Concomitant]
     Route: 048
  13. COMELIAN [Concomitant]
     Route: 048
  14. UBRETID [Concomitant]
     Route: 048

REACTIONS (5)
  - Altered state of consciousness [Recovered/Resolved]
  - Feeling abnormal [Unknown]
  - Intentional drug misuse [Unknown]
  - Drug diversion [Unknown]
  - Drug administered at inappropriate site [Unknown]
